FAERS Safety Report 13080161 (Version 4)
Quarter: 2017Q2

REPORT INFORMATION
  Report Type: Report from Study
  Country: BR (occurrence: BR)
  Receive Date: 20170103
  Receipt Date: 20170623
  Transmission Date: 20170830
  Serious: Yes (Death, Hospitalization)
  Sender: FDA-Public Use
  Company Number: BR-PFIZER INC-2016595720

PATIENT
  Age: 76 Year
  Sex: Male
  Weight: 43.3 kg

DRUGS (15)
  1. CARBOPLATIN. [Suspect]
     Active Substance: CARBOPLATIN
     Indication: NON-SMALL CELL LUNG CANCER
     Dosage: 357.09 MG, EVERY 21 DAYS
     Route: 042
     Dates: start: 20161118
  2. IPRATROPIUM [Concomitant]
     Active Substance: IPRATROPIUM
     Indication: BRONCHIAL DISORDER
     Dosage: 20 DROPS, EVERY 4 HOURS
     Route: 055
     Dates: start: 20161209
  3. DEXAMETHASONE. [Concomitant]
     Active Substance: DEXAMETHASONE
     Indication: INCREASED APPETITE
     Dosage: 4 MG, EVERY 8 HOURS
     Route: 048
     Dates: start: 20161209
  4. ACETYLCYSTEINE. [Concomitant]
     Active Substance: ACETYLCYSTEINE
     Indication: SECRETION DISCHARGE
     Dosage: 200 MG, EVERY 8 HOURS
     Route: 048
     Dates: start: 20161209
  5. LACTULOSE. [Concomitant]
     Active Substance: LACTULOSE
     Indication: CONSTIPATION
     Dosage: 15 ML, EVERY 8 HOURS
     Dates: start: 20161209
  6. FENOTEROL [Concomitant]
     Active Substance: FENOTEROL
     Indication: BRONCHIAL DISORDER
     Dosage: 6 DROPS, EVERY 6 HOURS
     Route: 055
     Dates: start: 20161209
  7. CODEINE [Concomitant]
     Active Substance: CODEINE
     Indication: COUGH
     Dosage: 30 MG, EVERY 4 HOURS
     Route: 048
     Dates: start: 20161209
  8. PARACETAMOL [Concomitant]
     Active Substance: ACETAMINOPHEN
     Indication: PAIN
     Dosage: 500 MG, EVERY 4 HOURS
     Route: 048
     Dates: start: 20161209
  9. PARACETAMOL [Concomitant]
     Active Substance: ACETAMINOPHEN
     Indication: PYREXIA
  10. OMEPRAZOLE. [Concomitant]
     Active Substance: OMEPRAZOLE
     Indication: GASTRITIS PROPHYLAXIS
     Dosage: 20 MG, ONCE A DAY
     Route: 048
     Dates: start: 20161209
  11. GLYCERIN /00200601/ [Concomitant]
     Active Substance: GLYCERIN
     Indication: CONSTIPATION
     Dosage: 500 ML, AS NEEDED
     Route: 054
     Dates: start: 20161209
  12. BEVACIZUMAB [Suspect]
     Active Substance: BEVACIZUMAB
     Indication: NON-SMALL CELL LUNG CANCER
     Dosage: 705 MG, EVERY 21 DAYS
     Route: 042
     Dates: start: 20161118
  13. MORPHINE [Concomitant]
     Active Substance: MORPHINE
     Indication: PAIN
     Dosage: 3 MG, AS NEEDED
     Route: 042
     Dates: start: 20161209
  14. PACLITAXEL. [Suspect]
     Active Substance: PACLITAXEL
     Indication: NON-SMALL CELL LUNG CANCER
     Dosage: 267.75 MG, EVERY 21 DAYS
     Route: 042
     Dates: start: 20161118
  15. PIPERACILLIN AND TAZOBACTAM [Concomitant]
     Active Substance: PIPERACILLIN SODIUM\TAZOBACTAM SODIUM
     Indication: ANTIBIOTIC THERAPY
     Dosage: 4.5 MG, EVERY 8 HOURS
     Route: 042
     Dates: start: 20161209

REACTIONS (4)
  - Neoplasm progression [Fatal]
  - Dehydration [Not Recovered/Not Resolved]
  - Anaemia [Not Recovered/Not Resolved]
  - Decreased appetite [Not Recovered/Not Resolved]

NARRATIVE: CASE EVENT DATE: 20161209
